FAERS Safety Report 24997133 (Version 1)
Quarter: 2025Q1

REPORT INFORMATION
  Report Type: Spontaneous
  Country: ES (occurrence: A1)
  Receive Date: 20250221
  Receipt Date: 20250221
  Transmission Date: 20250408
  Serious: Yes (Other)
  Sender: BRECKENRIDGE PHARMACEUTICAL, INC.
  Company Number: A1-Breckenridge Pharmaceutical, Inc.-2171573

PATIENT
  Sex: Female

DRUGS (2)
  1. OMEPRAZOLE [Suspect]
     Active Substance: OMEPRAZOLE
  2. ATORVASTATIN CALCIUM [Concomitant]
     Active Substance: ATORVASTATIN CALCIUM

REACTIONS (4)
  - Lupus-like syndrome [Not Recovered/Not Resolved]
  - Arthritis [Unknown]
  - SLE arthritis [Not Recovered/Not Resolved]
  - Red blood cell sedimentation rate increased [Unknown]
